FAERS Safety Report 11802068 (Version 2)
Quarter: 2015Q4

REPORT INFORMATION
  Report Type: Report from Study
  Country: ES (occurrence: ES)
  Receive Date: 20151204
  Receipt Date: 20151229
  Transmission Date: 20160305
  Serious: Yes (Hospitalization)
  Sender: FDA-Public Use
  Company Number: ES-PFIZER INC-2015425201

PATIENT
  Age: 73 Year
  Sex: Male

DRUGS (17)
  1. NOCTAMID [Concomitant]
     Active Substance: LORMETAZEPAM
     Dosage: UNK
  2. EMCONCOR COR [Concomitant]
     Active Substance: BISOPROLOL
     Dosage: UNK
  3. VALDOXAN [Concomitant]
     Active Substance: AGOMELATINE
     Dosage: UNK
  4. OMNIC OCAS [Concomitant]
     Active Substance: TAMSULOSIN HYDROCHLORIDE
     Dosage: UNK
  5. SEGURIL [Concomitant]
     Active Substance: FUROSEMIDE
     Dosage: UNK
  6. SINTROM [Concomitant]
     Active Substance: ACENOCOUMAROL
     Dosage: UNK
  7. NOLOTIL [Concomitant]
     Active Substance: METAMIZOLE
     Dosage: UNK
  8. RANEXA [Concomitant]
     Active Substance: RANOLAZINE
     Dosage: UNK
  9. PARAPRES [Concomitant]
     Active Substance: CANDESARTAN CILEXETIL
     Dosage: UNK
  10. ORFIDAL [Concomitant]
     Active Substance: LORAZEPAM
     Dosage: UNK
  11. TRANGOREX [Suspect]
     Active Substance: AMIODARONE HYDROCHLORIDE
     Dosage: 200 MG, DAILY
     Route: 048
     Dates: start: 201002, end: 20131124
  12. TIORFAN [Concomitant]
     Active Substance: RACECADOTRIL
     Dosage: UNK
  13. UNIKET RETARD [Concomitant]
     Active Substance: ISOSORBIDE MONONITRATE
     Dosage: UNK
  14. PROVISACOR [Concomitant]
     Active Substance: ROSUVASTATIN
     Dosage: UNK
  15. PLAVIX [Concomitant]
     Active Substance: CLOPIDOGREL BISULFATE
     Dosage: UNK
  16. ESOMEPRAZOLE [Concomitant]
     Active Substance: ESOMEPRAZOLE
     Dosage: UNK
  17. EZETROL [Concomitant]
     Active Substance: EZETIMIBE
     Dosage: UNK

REACTIONS (4)
  - Diarrhoea [Recovered/Resolved]
  - Hyperthyroidism [Recovered/Resolved]
  - Dehydration [Recovered/Resolved]
  - Cachexia [Recovered/Resolved]

NARRATIVE: CASE EVENT DATE: 201309
